FAERS Safety Report 18191276 (Version 1)
Quarter: 2020Q3

REPORT INFORMATION
  Report Type: Spontaneous
  Country: US (occurrence: US)
  Receive Date: 20200825
  Receipt Date: 20200825
  Transmission Date: 20201103
  Serious: No
  Sender: FDA-Public Use
  Company Number: US-ASTRAZENECA-2020SF04176

PATIENT
  Sex: Female

DRUGS (1)
  1. FARXIGA [Suspect]
     Active Substance: DAPAGLIFLOZIN PROPANEDIOL
     Dosage: UNKNOWN
     Route: 048

REACTIONS (6)
  - Dehydration [Unknown]
  - Sleep disorder [Unknown]
  - Weight decreased [Unknown]
  - Investigation abnormal [Unknown]
  - Pollakiuria [Unknown]
  - Muscle spasms [Unknown]
